FAERS Safety Report 13933093 (Version 1)
Quarter: 2017Q3

REPORT INFORMATION
  Report Type: Spontaneous
  Country: FR (occurrence: FR)
  Receive Date: 20170904
  Receipt Date: 20170904
  Transmission Date: 20171127
  Serious: Yes (Death, Other)
  Sender: FDA-Public Use
  Company Number: FR-BRISTOL-MYERS SQUIBB COMPANY-BMS-2017-075547

PATIENT
  Age: 76 Year
  Sex: Female

DRUGS (10)
  1. DIFFU K [Concomitant]
     Active Substance: POTASSIUM CHLORIDE
     Indication: PRODUCT USED FOR UNKNOWN INDICATION
     Route: 065
  2. KARDEGIC [Suspect]
     Active Substance: ASPIRIN LYSINE
     Indication: TRANSIENT ISCHAEMIC ATTACK
     Dosage: 1 DF, QD
     Route: 048
     Dates: end: 20170715
  3. LOVENOX [Suspect]
     Active Substance: ENOXAPARIN SODIUM
     Indication: RHEUMATIC HEART DISEASE
     Dosage: 0.6 ML, BID
     Route: 048
     Dates: start: 20170715
  4. RAMIPRIL. [Concomitant]
     Active Substance: RAMIPRIL
     Indication: PRODUCT USED FOR UNKNOWN INDICATION
     Route: 065
  5. BISOPROLOL [Concomitant]
     Active Substance: BISOPROLOL
     Indication: PRODUCT USED FOR UNKNOWN INDICATION
     Route: 065
  6. FOLIC ACID. [Concomitant]
     Active Substance: FOLIC ACID
     Indication: PRODUCT USED FOR UNKNOWN INDICATION
     Route: 065
  7. IMUREL                             /00001501/ [Concomitant]
     Active Substance: AZATHIOPRINE SODIUM
     Indication: PRODUCT USED FOR UNKNOWN INDICATION
     Route: 065
  8. LEVOTHYROX [Concomitant]
     Active Substance: LEVOTHYROXINE
     Indication: PRODUCT USED FOR UNKNOWN INDICATION
     Route: 065
  9. FUROSEMIDE. [Concomitant]
     Active Substance: FUROSEMIDE
     Indication: PRODUCT USED FOR UNKNOWN INDICATION
     Route: 065
  10. COUMADINE [Suspect]
     Active Substance: WARFARIN SODIUM
     Indication: RHEUMATIC HEART DISEASE
     Dosage: 1.5 DF, QD
     Route: 048
     Dates: end: 20170715

REACTIONS (9)
  - Shock haemorrhagic [Fatal]
  - Gastrointestinal haemorrhage [Recovered/Resolved]
  - Muscle haemorrhage [Fatal]
  - Acute kidney injury [Unknown]
  - Subcutaneous haematoma [Unknown]
  - Contraindicated product administered [Unknown]
  - Gastritis [Unknown]
  - Peritoneal haemorrhage [Unknown]
  - Anaemia [Unknown]

NARRATIVE: CASE EVENT DATE: 201707
